FAERS Safety Report 8371584-6 (Version None)
Quarter: 2012Q2

REPORT INFORMATION
  Report Type: 
  Country: None (occurrence: None)
  Receive Date: 20120518
  Receipt Date: 20120511
  Transmission Date: 20120825
  Serious: Yes (Other)
  Sender: FDA-Public Use
  Company Number: US-CELGENEUS-163-20785-12051510

PATIENT
  Sex: Female

DRUGS (5)
  1. THALOMID [Suspect]
     Indication: NEOPLASM
     Dosage: 100 MILLIGRAM
     Route: 048
     Dates: start: 20100301
  2. THALOMID [Suspect]
     Dosage: 200 MILLIGRAM
     Route: 048
     Dates: start: 20120101
  3. THALOMID [Suspect]
     Dosage: 150 GRAM
     Route: 048
     Dates: start: 20100901
  4. THALOMID [Suspect]
     Dosage: 200 MILLIGRAM
     Route: 048
     Dates: start: 20110101
  5. THALOMID [Suspect]
     Dosage: 150 MILLIGRAM
     Route: 048
     Dates: start: 20120201

REACTIONS (1)
  - HAEMORRHAGE [None]
